FAERS Safety Report 22769008 (Version 2)
Quarter: 2024Q1

REPORT INFORMATION
  Report Type: Spontaneous
  Country: US (occurrence: US)
  Receive Date: 20230731
  Receipt Date: 20240327
  Transmission Date: 20240409
  Serious: Yes (Other)
  Sender: FDA-Public Use
  Company Number: US-BEH-2023161629

PATIENT
  Age: 51 Year
  Sex: Male

DRUGS (2)
  1. IDELVION [Suspect]
     Active Substance: COAGULATION FACTOR IX RECOMBINANT HUMAN
     Indication: Factor IX deficiency
     Dosage: 7000 INTERNATIONAL UNIT, QW (EVERY 7 DAYS)
     Route: 042
     Dates: start: 202205
  2. IDELVION [Suspect]
     Active Substance: COAGULATION FACTOR IX RECOMBINANT HUMAN
     Indication: Factor IX deficiency
     Dosage: 7000 INTERNATIONAL UNIT, QW (EVERY 7 DAYS)
     Route: 042
     Dates: start: 202205

REACTIONS (6)
  - Haemarthrosis [Unknown]
  - Haemarthrosis [Unknown]
  - Haemarthrosis [Unknown]
  - Haemarthrosis [Unknown]
  - No adverse event [Unknown]
  - Sick leave [Unknown]

NARRATIVE: CASE EVENT DATE: 20231215
